FAERS Safety Report 8810417 (Version 1)
Quarter: 2012Q4

REPORT INFORMATION
  Report Type: 
  Country: GB (occurrence: GB)
  Receive Date: 20120927
  Receipt Date: 20120927
  Transmission Date: 20130627
  Serious: Yes (Other)
  Sender: FDA-Public Use
  Company Number: GB-009507513-1209GBR010389

PATIENT
  Sex: Male

DRUGS (1)
  1. FOSAMAX [Suspect]
     Dosage: UNK
     Route: 048

REACTIONS (4)
  - Myocardial infarction [Unknown]
  - Irritability [Unknown]
  - Sneezing [Unknown]
  - Foreign body [Unknown]
